FAERS Safety Report 4607972-0 (Version None)
Quarter: 2005Q2

REPORT INFORMATION
  Report Type: 
  Country: None (occurrence: None)
  Receive Date: 20050228
  Receipt Date: 20041222
  Transmission Date: 20051028
  Serious: No
  Sender: FDA-Public Use
  Company Number: FABR-10932

PATIENT
  Age: 35 Year
  Sex: Male
  Weight: 70.6704 kg

DRUGS (6)
  1. FABRAZYME [Suspect]
     Indication: FABRY'S DISEASE
     Dosage: 70 MG Q2WKS IV
     Route: 042
     Dates: start: 20040723
  2. TYLENOL (CAPLET) [Concomitant]
  3. ALLEGRA [Concomitant]
  4. ALTACE [Concomitant]
  5. MAG-OX [Concomitant]
  6. GUAIFENESIN [Concomitant]

REACTIONS (3)
  - BODY TEMPERATURE INCREASED [None]
  - FEELING COLD [None]
  - RESTLESSNESS [None]
